FAERS Safety Report 6279431-3 (Version None)
Quarter: 2009Q3

REPORT INFORMATION
  Report Type: 
  Country: None (occurrence: None)
  Receive Date: 20090723
  Receipt Date: 20090715
  Transmission Date: 20100115
  Serious: Yes (Other)
  Sender: FDA-Public Use
  Company Number: US-WYE-H10174609

PATIENT
  Sex: Female
  Weight: 97.61 kg

DRUGS (5)
  1. PRISTIQ [Suspect]
     Indication: DEPRESSION
     Route: 048
  2. PLAQUENIL [Concomitant]
     Dosage: 200 MG, FREQUENCY UNKNOWN
     Route: 048
  3. PREDNISONE [Concomitant]
     Dosage: 2.5 MG, FREQUENCY UNKNOWN
     Route: 048
  4. VITAMIN D [Concomitant]
     Dosage: 50000 UNIT EVERY 1 WK
     Route: 048
  5. THYROID TAB [Concomitant]
     Route: 048

REACTIONS (1)
  - SUICIDAL IDEATION [None]
